FAERS Safety Report 15556258 (Version 3)
Quarter: 2018Q4

REPORT INFORMATION
  Report Type: Spontaneous
  Country: IE (occurrence: IE)
  Receive Date: 20181026
  Receipt Date: 20181109
  Transmission Date: 20190205
  Serious: Yes (Hospitalization)
  Sender: FDA-Public Use
  Company Number: PHHY2018IE137281

PATIENT
  Age: 78 Year
  Sex: Male
  Weight: 76 kg

DRUGS (2)
  1. ENTRESTO [Suspect]
     Active Substance: SACUBITRIL\VALSARTAN
     Indication: PULMONARY HYPERTENSION
     Dosage: UNK
     Route: 048
     Dates: start: 20181003, end: 20181013
  2. REVATIO [Suspect]
     Active Substance: SILDENAFIL CITRATE
     Indication: PULMONARY HYPERTENSION
     Dosage: UNK
     Route: 048
     Dates: start: 20181003, end: 20181013

REACTIONS (4)
  - Pain [Recovered/Resolved with Sequelae]
  - Dyspnoea [Unknown]
  - Asthenia [Unknown]
  - Chest pain [Recovered/Resolved with Sequelae]
